FAERS Safety Report 7283742-2 (Version None)
Quarter: 2011Q1

REPORT INFORMATION
  Report Type: 
  Country: None (occurrence: None)
  Receive Date: 20110126
  Receipt Date: 20110110
  Transmission Date: 20110831
  Serious: Yes (Death)
  Sender: FDA-Public Use
  Company Number: B0694966A

PATIENT
  Age: 42 Year
  Sex: Female

DRUGS (5)
  1. ZOFRAN [Suspect]
  2. AMITRIPTYLINE (FORMULATION UNKNOWN) (AMITRIPTYLINE) [Suspect]
  3. HYDROMORPHONE HCL [Suspect]
  4. VERAPAMIL [Suspect]
     Dosage: ORAL
     Route: 048
  5. OMEPRAZOLE [Suspect]
     Dosage: ORAL
     Route: 048

REACTIONS (1)
  - DEATH [None]
